FAERS Safety Report 9082155 (Version 1)
Quarter: 2013Q1

REPORT INFORMATION
  Report Type: Report from Study
  Country: US (occurrence: US)
  Receive Date: 20130130
  Receipt Date: 20130130
  Transmission Date: 20140127
  Serious: No
  Sender: FDA-Public Use
  Company Number: US-ABBOTT-12P-163-0966612-00

PATIENT
  Age: 60 Year
  Sex: Female

DRUGS (4)
  1. HUMIRA 40 MG/0.8 ML PEN [Suspect]
     Indication: PSORIASIS
     Dosage: LOADING DOSE
     Dates: start: 20120806
  2. UNKNOWN PAIN PILL [Concomitant]
     Indication: PAIN
  3. UNKNOWN BLOOD PRESSURE PILL [Concomitant]
     Indication: BLOOD PRESSURE
     Dosage: DAILY
  4. UNKNOWN WATER PILL [Concomitant]
     Indication: PRODUCT USED FOR UNKNOWN INDICATION
     Dosage: DAILY

REACTIONS (2)
  - Gait disturbance [Unknown]
  - Pain in extremity [Not Recovered/Not Resolved]
